FAERS Safety Report 7021659-9 (Version None)
Quarter: 2010Q3

REPORT INFORMATION
  Report Type: 
  Country: None (occurrence: None)
  Receive Date: 20100928
  Receipt Date: 20100914
  Transmission Date: 20110219
  Serious: Yes (Hospitalization)
  Sender: FDA-Public Use
  Company Number: JPI-P-012238

PATIENT
  Age: 73 Year
  Sex: Female

DRUGS (11)
  1. XYREM [Suspect]
     Indication: CATAPLEXY
     Dosage: 4.5 GM (2.25 GM,2 IN 1 D),ORAL ; 6 GM (3 GM,2 IN 1 D),ORAL ; 7.5 GM (3.75 GM,2 IN 1 D),ORAL
     Route: 048
     Dates: start: 20071201
  2. DEXTROAMPHETAMINE [Concomitant]
  3. OXYBUTYNIN [Concomitant]
  4. PAROXETINE HYDROCHLORIDE [Concomitant]
  5. PANTOPRAZOLE [Concomitant]
  6. ATORVASTATIN [Concomitant]
  7. SERTRALINE HYDROCHLORIDE [Concomitant]
  8. GABAPENTIN [Concomitant]
  9. FUROSEMIDE [Concomitant]
  10. CALCIUM [Concomitant]
  11. VITAMIN D [Concomitant]

REACTIONS (3)
  - BALANCE DISORDER [None]
  - FALL [None]
  - WRIST FRACTURE [None]
